FAERS Safety Report 5753974-0 (Version None)
Quarter: 2008Q2

REPORT INFORMATION
  Report Type: 
  Country: None (occurrence: None)
  Receive Date: 20080527
  Receipt Date: 20080527
  Transmission Date: 20081010
  Serious: Yes (Other)
  Sender: FDA-Public Use
  Company Number: None

PATIENT
  Age: 56 Year
  Sex: Female
  Weight: 58.9676 kg

DRUGS (1)
  1. CHANTIX [Suspect]
     Indication: SMOKING CESSATION THERAPY
     Dosage: INTO THIRD WEEK--1 TABLET MORNING/EVENING PO  2 1/2  WEEKS
     Route: 048
     Dates: start: 20080508, end: 20080525

REACTIONS (2)
  - BACK PAIN [None]
  - MUSCULOSKELETAL STIFFNESS [None]
